FAERS Safety Report 6323497-9 (Version None)
Quarter: 2009Q3

REPORT INFORMATION
  Report Type: 
  Country: None (occurrence: None)
  Receive Date: 20090824
  Receipt Date: 20090611
  Transmission Date: 20100115
  Serious: No
  Sender: FDA-Public Use
  Company Number: US-ABBOTT-09P-163-0579341-00

PATIENT
  Sex: Female

DRUGS (16)
  1. NIASPAN [Suspect]
     Indication: BLOOD TRIGLYCERIDES INCREASED
     Dosage: DAILY AT BEDTIME
     Route: 048
  2. LISINOPRIL [Concomitant]
     Indication: DRUG USE FOR UNKNOWN INDICATION
  3. BYSTOLIC [Concomitant]
     Indication: DRUG USE FOR UNKNOWN INDICATION
  4. LANTUS [Concomitant]
     Indication: DRUG USE FOR UNKNOWN INDICATION
     Route: 058
  5. NOVOLOG [Concomitant]
     Indication: DRUG USE FOR UNKNOWN INDICATION
     Route: 058
  6. LEVOTHYROXINE SODIUM [Concomitant]
     Indication: DRUG USE FOR UNKNOWN INDICATION
  7. LASIX [Concomitant]
     Indication: DRUG USE FOR UNKNOWN INDICATION
  8. PREVACID [Concomitant]
     Indication: DRUG USE FOR UNKNOWN INDICATION
  9. KLOR-CON [Concomitant]
     Indication: DRUG USE FOR UNKNOWN INDICATION
  10. TRAZODONE HCL [Concomitant]
     Indication: DRUG USE FOR UNKNOWN INDICATION
  11. XANAX [Concomitant]
     Indication: DRUG USE FOR UNKNOWN INDICATION
  12. EFFEXOR [Concomitant]
     Indication: DRUG USE FOR UNKNOWN INDICATION
  13. CELEBREX [Concomitant]
     Indication: DRUG USE FOR UNKNOWN INDICATION
  14. OPANA [Concomitant]
     Indication: DRUG USE FOR UNKNOWN INDICATION
  15. COUMADIN [Concomitant]
     Indication: DRUG USE FOR UNKNOWN INDICATION
  16. ASPIRIN [Concomitant]
     Indication: DRUG USE FOR UNKNOWN INDICATION
     Route: 048

REACTIONS (2)
  - BLOOD GLUCOSE INCREASED [None]
  - FEELING HOT [None]
